FAERS Safety Report 5908527-8 (Version None)
Quarter: 2008Q4

REPORT INFORMATION
  Report Type: 
  Country: None (occurrence: None)
  Receive Date: 20081006
  Receipt Date: 20080922
  Transmission Date: 20090506
  Serious: Yes (Other)
  Sender: FDA-Public Use
  Company Number: US-AMGEN-US309168

PATIENT
  Sex: Female

DRUGS (3)
  1. NEULASTA [Suspect]
     Indication: CHEMOTHERAPY
     Dates: start: 20080904
  2. UNSPECIFIED ANTICOAGULANT [Concomitant]
  3. UNSPECIFIED ANTINEOPLASTIC AGENT [Concomitant]

REACTIONS (3)
  - ASTHENIA [None]
  - BONE PAIN [None]
  - MALAISE [None]
